FAERS Safety Report 8880760 (Version 2)
Quarter: 2013Q2

REPORT INFORMATION
  Report Type: Spontaneous
  Country: FR (occurrence: FR)
  Receive Date: 20121101
  Receipt Date: 20130404
  Transmission Date: 20140414
  Serious: Yes (Hospitalization)
  Sender: FDA-Public Use
  Company Number: FR-GLAXOSMITHKLINE-B0839858A

PATIENT
  Age: 57 Year
  Sex: Female

DRUGS (30)
  1. ZOVIRAX [Suspect]
     Indication: PROPHYLAXIS
     Route: 065
     Dates: start: 20120731, end: 20120807
  2. FORTUM [Suspect]
     Indication: PSEUDOMONAS INFECTION
     Route: 042
     Dates: start: 20120802, end: 20120809
  3. OXYNORM [Suspect]
     Indication: PAIN
     Route: 048
     Dates: start: 20120731, end: 20120805
  4. VANCOMYCIN [Suspect]
     Indication: PSEUDOMONAS INFECTION
     Route: 042
     Dates: start: 20120803, end: 20120805
  5. PLITICAN [Suspect]
     Indication: NAUSEA
     Route: 042
     Dates: start: 20120727, end: 20120808
  6. TRIFLUCAN [Suspect]
     Indication: PROPHYLAXIS
     Route: 065
     Dates: start: 20120725, end: 20120806
  7. ZELITREX [Concomitant]
     Dates: start: 20120722, end: 20120730
  8. ZOPHREN [Concomitant]
     Dates: start: 20120722, end: 20120725
  9. DEXAMETHASONE [Concomitant]
  10. NEBIVOLOL [Concomitant]
  11. LIDOCAINE [Concomitant]
  12. LIPANTHYL [Concomitant]
  13. HYDROCHLOROTHIAZIDE + OLMESARTAN MEDOXOMIL [Concomitant]
  14. ALKERAN [Concomitant]
     Indication: BONE MARROW TRANSPLANT
     Dates: start: 20120723, end: 20120724
  15. NEULASTA [Concomitant]
     Dates: start: 20120727
  16. VELCADE [Concomitant]
  17. THALIDOMIDE [Concomitant]
  18. MYOLASTAN [Concomitant]
     Dates: start: 20120725, end: 20120728
  19. TRANSIPEG [Concomitant]
     Dates: start: 20120726, end: 20120730
  20. CERNEVIT [Concomitant]
     Dates: start: 20120726, end: 20120730
  21. OLIGOELEMENTS [Concomitant]
     Dates: start: 20120726, end: 20120730
  22. OLICLINOMEL [Concomitant]
     Dates: start: 20120726, end: 20120729
  23. PERFALGAN [Concomitant]
     Dates: start: 20120803, end: 20120807
  24. AMIKLIN [Concomitant]
     Dates: start: 20120731, end: 20120803
  25. FLAGYL [Concomitant]
     Dates: start: 20120802, end: 20120807
  26. ACUPAN [Concomitant]
     Dates: start: 20120802, end: 20120807
  27. SPASFON [Concomitant]
     Dates: start: 20120803, end: 20120810
  28. SMECTA [Concomitant]
     Dates: start: 20120804, end: 20120810
  29. TIORFAN [Concomitant]
     Dates: start: 20120804, end: 20120810
  30. MOPRAL [Concomitant]

REACTIONS (15)
  - Rash maculo-papular [Recovered/Resolved]
  - Jaundice cholestatic [Recovered/Resolved]
  - Vomiting [Unknown]
  - Malaise [Unknown]
  - Paraesthesia [Unknown]
  - Pruritus [Recovered/Resolved]
  - Chills [Unknown]
  - Pyrexia [Unknown]
  - Oxygen saturation decreased [Unknown]
  - Hypercapnia [Unknown]
  - Hyperventilation [Unknown]
  - Flushing [Unknown]
  - Blood pressure increased [Unknown]
  - Diarrhoea [Unknown]
  - Bronchospasm [Unknown]
